FAERS Safety Report 11236576 (Version 1)
Quarter: 2015Q3

REPORT INFORMATION
  Report Type: Spontaneous
  Country: US (occurrence: US)
  Receive Date: 20150702
  Receipt Date: 20150702
  Transmission Date: 20151125
  Serious: No
  Sender: FDA-Public Use
  Company Number: US-TAKEDA-2015TUS004812

PATIENT
  Age: 55 Year
  Sex: Female

DRUGS (1)
  1. CONTRAVE [Suspect]
     Active Substance: BUPROPION HYDROCHLORIDE\NALTREXONE HYDROCHLORIDE
     Indication: PRODUCT USED FOR UNKNOWN INDICATION
     Dosage: TWO IN THE MORNING AND TWO IN THE EVENING
     Route: 048
     Dates: end: 20150407

REACTIONS (4)
  - Flushing [Unknown]
  - Palpitations [Unknown]
  - Balance disorder [Unknown]
  - Fall [Unknown]
